FAERS Safety Report 6051582-8 (Version None)
Quarter: 2009Q1

REPORT INFORMATION
  Report Type: 
  Country: None (occurrence: None)
  Receive Date: 20090126
  Receipt Date: 20090122
  Transmission Date: 20090719
  Serious: Yes (Hospitalization)
  Sender: FDA-Public Use
  Company Number: B0556011A

PATIENT
  Age: 78 Year
  Sex: Male

DRUGS (1)
  1. AMOXICILLIN + CLAVULANATE POTASSIUM [Suspect]
     Dosage: 1TAB PER DAY
     Route: 048
     Dates: start: 20081226, end: 20081226

REACTIONS (4)
  - BLOOD PRESSURE DECREASED [None]
  - LARYNGEAL OEDEMA [None]
  - URTICARIA [None]
  - WHEEZING [None]
